FAERS Safety Report 5132611-2 (Version None)
Quarter: 2006Q4

REPORT INFORMATION
  Report Type: 
  Country: None (occurrence: None)
  Receive Date: 20061017
  Receipt Date: 20061005
  Transmission Date: 20070319
  Serious: Yes (Hospitalization)
  Sender: FDA-Public Use
  Company Number: MEDI-0004840

PATIENT
  Age: 50 Year
  Sex: Male

DRUGS (7)
  1. ETHYOL [Suspect]
     Indication: RADIOTHERAPY
     Dosage: 500 MG, 5 IN 5 D, SUBCUTANEOUS
     Route: 058
     Dates: start: 20060714
  2. CARBOPLATIN [Concomitant]
  3. TAXOL [Concomitant]
  4. FLUOROURACIL [Concomitant]
  5. RADIATION THERAPY [Concomitant]
  6. ALLEGRA [Concomitant]
  7. SALAGEN [Concomitant]

REACTIONS (9)
  - CATHETER RELATED INFECTION [None]
  - DRY SKIN [None]
  - INJECTION SITE VESICLES [None]
  - MUCOSAL INFLAMMATION [None]
  - PHARYNGOLARYNGEAL PAIN [None]
  - PRURITUS [None]
  - RADIATION INJURY [None]
  - RASH [None]
  - SKIN EXFOLIATION [None]
